FAERS Safety Report 16260933 (Version 2)
Quarter: 2019Q2

REPORT INFORMATION
  Report Type: Report from Study
  Country: US (occurrence: US)
  Receive Date: 20190501
  Receipt Date: 20190610
  Transmission Date: 20190711
  Serious: No
  Sender: FDA-Public Use
  Company Number: US-JAZZ-2019-US-005003

PATIENT
  Age: 38 Year
  Sex: Male

DRUGS (69)
  1. TYLENOL EXTRA STRENGTH [Concomitant]
     Active Substance: ACETAMINOPHEN
  2. ORKAMBI [Concomitant]
     Active Substance: IVACAFTOR\LUMACAFTOR
  3. PAROXETINE HYDROCHLORIDE. [Concomitant]
     Active Substance: PAROXETINE HYDROCHLORIDE
  4. ZYVOX [Concomitant]
     Active Substance: LINEZOLID
  5. LORAZEPAM. [Concomitant]
     Active Substance: LORAZEPAM
  6. XARELTO [Concomitant]
     Active Substance: RIVAROXABAN
  7. ONDANSETRON [Concomitant]
     Active Substance: ONDANSETRON
  8. CLOFAZIMINE [Concomitant]
     Active Substance: CLOFAZIMINE
  9. IBUPROFEN. [Concomitant]
     Active Substance: IBUPROFEN
  10. ACETYLCYSTEINE. [Concomitant]
     Active Substance: ACETYLCYSTEINE
  11. PROAIR HFA [Concomitant]
     Active Substance: ALBUTEROL SULFATE
  12. SIMETHICONE (DIMETHICONE) [Concomitant]
     Active Substance: DIMETHICONE
  13. DULERA [Concomitant]
     Active Substance: FORMOTEROL FUMARATE DIHYDRATE\MOMETASONE FUROATE
  14. MIRALAX [Concomitant]
     Active Substance: POLYETHYLENE GLYCOL 3350
  15. NAPROSYNE [Concomitant]
     Active Substance: NAPROXEN
  16. SENOKOT-S [Concomitant]
     Active Substance: DOCUSATE SODIUM\SENNOSIDES
  17. AZITHROMYCIN ANHYDROUS. [Concomitant]
     Active Substance: AZITHROMYCIN ANHYDROUS
  18. CIPROFLOXACIN HCL [Concomitant]
     Active Substance: CIPROFLOXACIN HYDROCHLORIDE
  19. EPIPEN [Concomitant]
     Active Substance: EPINEPHRINE
  20. LEXAPRO [Concomitant]
     Active Substance: ESCITALOPRAM OXALATE
  21. OXYCODONE HYDROCHLORIDE. [Concomitant]
     Active Substance: OXYCODONE HYDROCHLORIDE
  22. DOCUSATE SODIUM. [Concomitant]
     Active Substance: DOCUSATE SODIUM
  23. MSM [Concomitant]
     Active Substance: DIMETHYL SULFONE
  24. VIT D [Concomitant]
     Active Substance: VITAMIN D NOS
  25. BISACODYL. [Concomitant]
     Active Substance: BISACODYL
  26. ESCITALOPRAM [Concomitant]
     Active Substance: ESCITALOPRAM OXALATE
  27. PERTZYE [Concomitant]
     Active Substance: PANCRELIPASE AMYLASE\PANCRELIPASE LIPASE\PANCRELIPASE PROTEASE
  28. PREVACID [Concomitant]
     Active Substance: LANSOPRAZOLE
  29. SINGULAIR [Concomitant]
     Active Substance: MONTELUKAST SODIUM
  30. VOLTAREN [Concomitant]
     Active Substance: DICLOFENAC SODIUM
  31. XYREM [Suspect]
     Active Substance: SODIUM OXYBATE
     Dosage: DOSE ADJUSTMENT
     Route: 048
     Dates: start: 201304, end: 201808
  32. OMEPRAZOLE. [Concomitant]
     Active Substance: OMEPRAZOLE
  33. ACETAMINOPHEN. [Concomitant]
     Active Substance: ACETAMINOPHEN
  34. ADDERALL [Concomitant]
     Active Substance: AMPHETAMINE ASPARTATE\AMPHETAMINE SULFATE\DEXTROAMPHETAMINE SACCHARATE\DEXTROAMPHETAMINE SULFATE
  35. CYMBALTA [Concomitant]
     Active Substance: DULOXETINE HYDROCHLORIDE
  36. DEKASOFT [Concomitant]
  37. PSYLLIUM HUSKS [Concomitant]
     Active Substance: PSYLLIUM HUSK
  38. VITAMIN B COMPLEX [Concomitant]
     Active Substance: CYANOCOBALAMIN\DEXPANTHENOL\NIACINAMIDE\PYRIDOXINE HYDROCHLORIDE\RIBOFLAVIN 5^-PHOSPHATE SODIUM\THIAMINE HYDROCHLORIDE\VITAMIN B COMPLEX
  39. ZANTAC [Concomitant]
     Active Substance: RANITIDINE HYDROCHLORIDE
  40. PROZAC [Concomitant]
     Active Substance: FLUOXETINE HYDROCHLORIDE
  41. AMIKACIN SULFATE. [Concomitant]
     Active Substance: AMIKACIN SULFATE
  42. SINUS RINSE [Concomitant]
     Active Substance: SODIUM BICARBONATE\SODIUM CHLORIDE
  43. ALLOPURINOL. [Concomitant]
     Active Substance: ALLOPURINOL
  44. CAYSTON [Concomitant]
     Active Substance: AZTREONAM
  45. BOOST [Concomitant]
     Active Substance: DIETARY SUPPLEMENT
  46. VANCOMYCIN HCL [Concomitant]
     Active Substance: VANCOMYCIN HYDROCHLORIDE
  47. XYREM [Suspect]
     Active Substance: SODIUM OXYBATE
     Indication: NARCOLEPSY
     Dosage: 3 G, BID
     Route: 048
     Dates: start: 201003, end: 201003
  48. VYVANSE [Concomitant]
     Active Substance: LISDEXAMFETAMINE DIMESYLATE
  49. LACTULOSE. [Concomitant]
     Active Substance: LACTULOSE
  50. MINOCYCLINE [Concomitant]
     Active Substance: MINOCYCLINE\MINOCYCLINE HYDROCHLORIDE
  51. PRADAXA [Concomitant]
     Active Substance: DABIGATRAN ETEXILATE MESYLATE
  52. TIZANIDINE HCL [Concomitant]
     Active Substance: TIZANIDINE HYDROCHLORIDE
  53. XYREM [Suspect]
     Active Substance: SODIUM OXYBATE
     Dosage: 3 G, BID
     Route: 048
     Dates: start: 201201, end: 201303
  54. XYREM [Suspect]
     Active Substance: SODIUM OXYBATE
     Dosage: 3.75 G, BID
     Route: 048
     Dates: start: 201808, end: 2019
  55. SODIUM CHLORIDE. [Concomitant]
     Active Substance: SODIUM CHLORIDE
  56. VIMPAT [Concomitant]
     Active Substance: LACOSAMIDE
  57. PULMICORT TURBUHALER [Concomitant]
     Active Substance: BUDESONIDE
  58. XYZAL [Concomitant]
     Active Substance: LEVOCETIRIZINE DIHYDROCHLORIDE
  59. ACTIGALL [Concomitant]
     Active Substance: URSODIOL
  60. AMITIZA [Concomitant]
     Active Substance: LUBIPROSTONE
  61. LISINOPRIL. [Concomitant]
     Active Substance: LISINOPRIL
  62. NULYTELY [Concomitant]
     Active Substance: POLYETHYLENE GLYCOL 3350\POTASSIUM CHLORIDE\SODIUM BICARBONATE\SODIUM CHLORIDE
  63. TOBI [Concomitant]
     Active Substance: TOBRAMYCIN
  64. XYREM [Suspect]
     Active Substance: SODIUM OXYBATE
     Dosage: 3.25 G, BID
     Route: 048
     Dates: start: 201003, end: 2010
  65. PULMOZYME [Concomitant]
     Active Substance: DORNASE ALFA
  66. ZENPEP [Concomitant]
     Active Substance: PANCRELIPASE AMYLASE\PANCRELIPASE LIPASE\PANCRELIPASE PROTEASE
  67. WELLBUTRIN [Concomitant]
     Active Substance: BUPROPION HYDROCHLORIDE
  68. MILK OF MAGNESIA [Concomitant]
     Active Substance: MAGNESIUM HYDROXIDE
  69. VSL#3 [Concomitant]
     Active Substance: PROBIOTICS NOS

REACTIONS (6)
  - Limb injury [Unknown]
  - Burning sensation [Unknown]
  - Joint injury [Unknown]
  - Irritability [Unknown]
  - Blood alkaline phosphatase increased [Unknown]
  - Road traffic accident [Unknown]

NARRATIVE: CASE EVENT DATE: 20190304
